FAERS Safety Report 5696491-9 (Version None)
Quarter: 2008Q2

REPORT INFORMATION
  Report Type: 
  Country: None (occurrence: None)
  Receive Date: 20080408
  Receipt Date: 20080328
  Transmission Date: 20081010
  Serious: Yes (Death, Life-Threatening, Hospitalization)
  Sender: FDA-Public Use
  Company Number: BR-BOEHRINGER INGELHEIM GMBH, GERMANY-2008-BP-04835BR

PATIENT
  Sex: Male

DRUGS (7)
  1. SPIRIVA [Suspect]
     Indication: CHRONIC OBSTRUCTIVE PULMONARY DISEASE
     Route: 055
     Dates: start: 20041202
  2. TALOFILINA [Concomitant]
  3. ANCORON [Concomitant]
  4. CEWIN [Concomitant]
  5. FORADIL [Concomitant]
  6. LASIX [Concomitant]
  7. EPREX [Concomitant]

REACTIONS (1)
  - MYELODYSPLASTIC SYNDROME [None]
